FAERS Safety Report 8833707 (Version 1)
Quarter: 2012Q4

REPORT INFORMATION
  Report Type: Report from Study
  Country: CA (occurrence: CA)
  Receive Date: 20121010
  Receipt Date: 20121010
  Transmission Date: 20130627
  Serious: Yes (Death)
  Sender: FDA-Public Use
  Company Number: CA-ROCHE-1142036

PATIENT
  Sex: Male
  Weight: 78.54 kg

DRUGS (19)
  1. MABTHERA [Suspect]
     Indication: BILE DUCT STENOSIS
     Dosage: Q week
     Route: 042
     Dates: start: 20110503
  2. MABTHERA [Suspect]
     Indication: AUTOIMMUNE PANCREATITIS
     Dosage: Q 3-4 months
     Route: 042
     Dates: start: 20110719
  3. MABTHERA [Suspect]
     Indication: BILIARY CIRRHOSIS PRIMARY
     Dosage: Q 3-4 months
     Route: 042
     Dates: start: 20120110
  4. SYNTHROID [Concomitant]
  5. NEXIUM [Concomitant]
  6. CRESTOR [Concomitant]
  7. NADOLOL [Concomitant]
  8. URSODIOL [Concomitant]
  9. MONOPRIL [Concomitant]
  10. FLOMAX [Concomitant]
  11. TESTOSTERONE [Concomitant]
  12. NOVORAPID [Concomitant]
  13. PANCREASE [Concomitant]
  14. CYMBALTA [Concomitant]
  15. PERCOCET [Concomitant]
  16. REQUIP [Concomitant]
  17. FOLIC ACID [Concomitant]
  18. VITAMIN A [Concomitant]
  19. PREDNISONE [Concomitant]

REACTIONS (1)
  - Death [Fatal]
